FAERS Safety Report 9731353 (Version 1)
Quarter: 2013Q4

REPORT INFORMATION
  Report Type: Spontaneous
  Country: BR (occurrence: BR)
  Receive Date: 20131203
  Receipt Date: 20131203
  Transmission Date: 20140711
  Serious: No
  Sender: FDA-Public Use
  Company Number: BR-ELI_LILLY_AND_COMPANY-BR201311002986

PATIENT
  Sex: Female
  Weight: 61 kg

DRUGS (5)
  1. CYMBALTA [Suspect]
     Indication: FIBROMYALGIA
     Dosage: 60 MG, BID
     Route: 048
     Dates: start: 2009
  2. RIVOTRIL [Concomitant]
     Indication: PRODUCT USED FOR UNKNOWN INDICATION
     Dosage: 2 MG, QD
     Route: 065
  3. CONDROFLEX [Concomitant]
     Indication: OSTEOARTHRITIS
     Dosage: 2 DF, QD
     Route: 065
     Dates: start: 2011
  4. OSTEOFIX [Concomitant]
     Indication: OSTEOPENIA
     Dosage: 1 DF, QD
     Route: 065
     Dates: start: 2012
  5. SINVASTATINA [Concomitant]
     Indication: BLOOD CHOLESTEROL
     Dosage: 20 MG, QD
     Dates: start: 201306

REACTIONS (7)
  - Migraine [Not Recovered/Not Resolved]
  - Swelling [Unknown]
  - High density lipoprotein abnormal [Unknown]
  - Blood triglycerides increased [Unknown]
  - Blood cholesterol increased [Unknown]
  - Hypersensitivity [Not Recovered/Not Resolved]
  - Weight increased [Unknown]
